FAERS Safety Report 10201626 (Version 2)
Quarter: 2014Q2

REPORT INFORMATION
  Report Type: Report from Study
  Country: BR (occurrence: BR)
  Receive Date: 20140528
  Receipt Date: 20140626
  Transmission Date: 20141212
  Serious: Yes (Hospitalization, Other)
  Sender: FDA-Public Use
  Company Number: PHHY2014BR065299

PATIENT
  Age: 61 Year
  Sex: Male
  Weight: 97 kg

DRUGS (4)
  1. DIOVAN AMLO FIX [Suspect]
     Indication: BLOOD PRESSURE MANAGEMENT
     Dosage: 1 DF (160/5 MG), QD (AFTER BREAKFAST)
     Route: 048
     Dates: end: 20140510
  2. SIMVASTATIN [Concomitant]
     Indication: BLOOD CHOLESTEROL ABNORMAL
     Dosage: UNK UKN, UNK
     Dates: end: 20140519
  3. GLIMEPIRIDE [Concomitant]
     Indication: BLOOD CHOLESTEROL ABNORMAL
     Dosage: UNK UKN, UNK
     Dates: end: 20140519
  4. GLIFAGE [Concomitant]
     Indication: DIABETES MELLITUS
     Dosage: UNK UKN, UNK
     Dates: end: 20140519

REACTIONS (3)
  - Venous thrombosis [Unknown]
  - Infarction [Unknown]
  - Pain [Unknown]
